FAERS Safety Report 12077604 (Version 2)
Quarter: 2017Q1

REPORT INFORMATION
  Report Type: Spontaneous
  Country: JP (occurrence: JP)
  Receive Date: 20160215
  Receipt Date: 20170206
  Transmission Date: 20170428
  Serious: Yes (Hospitalization, Other)
  Sender: FDA-Public Use
  Company Number: JP-BAYER-2016-023479

PATIENT
  Age: 34 Year
  Sex: Male
  Weight: 53 kg

DRUGS (6)
  1. BUFFERIN A (ASPIRIN\HYDROTALCITE) [Suspect]
     Active Substance: ASPIRIN\HYDROTALCITE
     Dosage: 26400 MG, UNK
     Route: 048
  2. DECOLGEN (ACETAMINOPHEN\ASCORBIC ACID\CHLORPHENIRAMINE MALEATE\PHENYLPROPANOLAMINE HYDROCHLORIDE) [Suspect]
     Active Substance: ACETAMINOPHEN\ASCORBIC ACID\CHLORPHENIRAMINE MALEATE\PHENYLPROPANOLAMINE HYDROCHLORIDE
     Dosage: DOSE 60 DF WITH ALCOHOL
     Route: 048
  3. DECOLGEN (ACETAMINOPHEN\ASCORBIC ACID\CHLORPHENIRAMINE MALEATE\PHENYLPROPANOLAMINE HYDROCHLORIDE) [Suspect]
     Active Substance: ACETAMINOPHEN\ASCORBIC ACID\CHLORPHENIRAMINE MALEATE\PHENYLPROPANOLAMINE HYDROCHLORIDE
     Dosage: 30000 MG, UNK
     Route: 048
  4. BAYER ASPIRIN [Suspect]
     Active Substance: ASPIRIN
     Dosage: 9000 MG, UNK
     Route: 048
  5. BAYER ASPIRIN [Suspect]
     Active Substance: ASPIRIN
     Dosage: 180 DF, WITH ALCOHOL
     Route: 048
  6. BUFFERIN A (ASPIRIN\HYDROTALCITE) [Suspect]
     Active Substance: ASPIRIN\HYDROTALCITE
     Dosage: DOSE 80 DF WITH ALCOHOL
     Route: 048

REACTIONS (19)
  - Haemodialysis [None]
  - Limb injury [None]
  - Renal disorder [None]
  - Infection [None]
  - Hypoglycaemia [None]
  - Rhabdomyolysis [Recovering/Resolving]
  - Cardio-respiratory arrest [Recovered/Resolved]
  - Product use issue [None]
  - Hyperkalaemia [None]
  - Restlessness [None]
  - Blood pressure decreased [None]
  - Pyrexia [None]
  - Compartment syndrome [None]
  - Body temperature increased [None]
  - Metabolic acidosis [None]
  - Bradycardia [None]
  - Vomiting [None]
  - Acute kidney injury [None]
  - Intentional overdose [None]
